FAERS Safety Report 5638183-8 (Version None)
Quarter: 2008Q1

REPORT INFORMATION
  Report Type: 
  Country: None (occurrence: None)
  Receive Date: 20080226
  Receipt Date: 20080219
  Transmission Date: 20080703
  Serious: Yes (Death, Other)
  Sender: FDA-Public Use
  Company Number: BR-ASTRAZENECA-2007UW26138

PATIENT
  Age: 94 Year
  Sex: Male

DRUGS (1)
  1. CASODEX [Suspect]
     Indication: PROSTATE CANCER
     Dosage: START DATE=}6 YEARS
     Route: 048

REACTIONS (4)
  - DEATH [None]
  - METASTASES TO SPINE [None]
  - PAIN [None]
  - WOUND [None]
